FAERS Safety Report 4452238-5 (Version None)
Quarter: 2004Q3

REPORT INFORMATION
  Report Type: 
  Country: None (occurrence: None)
  Receive Date: 20040915
  Receipt Date: 20040901
  Transmission Date: 20050211
  Serious: No
  Sender: FDA-Public Use
  Company Number: DE-2004-031145

PATIENT
  Age: 65 Year
  Sex: Male

DRUGS (1)
  1. REFLUDAN [Suspect]
     Indication: HEPARIN-INDUCED THROMBOCYTOPENIA
     Dosage: 50 MG, 1 DOSE, INTRAVENOUS
     Route: 042

REACTIONS (5)
  - ACCIDENTAL OVERDOSE [None]
  - COAGULATION TIME PROLONGED [None]
  - HAEMODIALYSIS [None]
  - MEDICATION ERROR [None]
  - RENAL FAILURE ACUTE [None]
